FAERS Safety Report 10496366 (Version 8)
Quarter: 2015Q3

REPORT INFORMATION
  Report Type: Report from Study
  Country: US (occurrence: US)
  Receive Date: 20141003
  Receipt Date: 20150817
  Transmission Date: 20151125
  Serious: Yes (Hospitalization, Other)
  Sender: FDA-Public Use
  Company Number: US-ACTELION-A-US2014-106129

PATIENT
  Age: 63 Year
  Sex: Female

DRUGS (2)
  1. ADCIRCA [Concomitant]
     Active Substance: TADALAFIL
  2. VENTAVIS [Suspect]
     Active Substance: ILOPROST
     Indication: PULMONARY ARTERIAL HYPERTENSION
     Dosage: 5 MCG, 6-9X/DAY
     Route: 055
     Dates: start: 20070827

REACTIONS (12)
  - Incoherent [Unknown]
  - Fall [Unknown]
  - Head injury [Unknown]
  - Rehabilitation therapy [Unknown]
  - Oedema peripheral [Unknown]
  - Hip fracture [Unknown]
  - Infection [Unknown]
  - Blood sodium decreased [Unknown]
  - Mobility decreased [Unknown]
  - Blood potassium decreased [Unknown]
  - Pneumonia [Unknown]
  - Pelvic fracture [Unknown]
